FAERS Safety Report 12300399 (Version 1)
Quarter: 2016Q2

REPORT INFORMATION
  Report Type: Spontaneous
  Country: JP (occurrence: JP)
  Receive Date: 20160425
  Receipt Date: 20160425
  Transmission Date: 20160815
  Serious: Yes (Other)
  Sender: FDA-Public Use
  Company Number: JP-SA-2016SA081045

PATIENT
  Age: 51 Year
  Sex: Female

DRUGS (1)
  1. FEXOFENADINE HYDROCHLORIDE SANIK [Suspect]
     Active Substance: FEXOFENADINE HYDROCHLORIDE
     Route: 048
     Dates: start: 201303, end: 201404

REACTIONS (1)
  - Agranulocytosis [Unknown]
